FAERS Safety Report 16039335 (Version 1)
Quarter: 2019Q1

REPORT INFORMATION
  Report Type: Spontaneous
  Country: AR (occurrence: AR)
  Receive Date: 20190306
  Receipt Date: 20190306
  Transmission Date: 20190418
  Serious: Yes (Other)
  Sender: FDA-Public Use
  Company Number: AR-BRISTOL-MYERS SQUIBB COMPANY-BMS-2019-022950

PATIENT
  Age: 74 Year
  Sex: Male

DRUGS (1)
  1. ELIQUIS [Suspect]
     Active Substance: APIXABAN
     Indication: PERICARDITIS
     Dosage: 2.5 MG, BID
     Route: 065

REACTIONS (3)
  - Urethral stenosis [Unknown]
  - Product use in unapproved indication [Unknown]
  - Haemorrhage [Unknown]

NARRATIVE: CASE EVENT DATE: 201812
